FAERS Safety Report 17552556 (Version 1)
Quarter: 2020Q1

REPORT INFORMATION
  Report Type: Spontaneous
  Country: FR (occurrence: FR)
  Receive Date: 20200318
  Receipt Date: 20200318
  Transmission Date: 20200409
  Serious: Yes (Hospitalization, Other)
  Sender: FDA-Public Use
  Company Number: FR-AUROBINDO-AUR-APL-2020-013164

PATIENT
  Age: 41 Year
  Sex: Male
  Weight: 35 kg

DRUGS (9)
  1. MEROPENEM. [Suspect]
     Active Substance: MEROPENEM
     Indication: ANTIBIOTIC THERAPY
     Dosage: 1 GRAM
     Route: 042
     Dates: start: 20200218, end: 20200220
  2. AMIKACINE [Suspect]
     Active Substance: AMIKACIN
     Indication: ANTIBIOTIC THERAPY
     Dosage: UNK
     Route: 051
     Dates: start: 20200218, end: 20200220
  3. LEVOTHYROX [Suspect]
     Active Substance: LEVOTHYROXINE
     Indication: HYPOTHYROIDISM
     Dosage: 1 DOSAGE FORM, ONCE A DAY
     Route: 048
  4. OXCARBAZEPINE. [Suspect]
     Active Substance: OXCARBAZEPINE
     Indication: EPILEPSY
     Dosage: 600 MILLIGRAM, ONCE A DAY
     Route: 048
  5. PROPOFOL. [Suspect]
     Active Substance: PROPOFOL
     Indication: ANAESTHESIA
     Dosage: UNK UNK, TWO TIMES A DAY
     Route: 041
     Dates: start: 20200218, end: 20200218
  6. VANCOMYCINE [Suspect]
     Active Substance: VANCOMYCIN
     Indication: ANTIBIOTIC THERAPY
     Dosage: UNK
     Route: 051
     Dates: start: 20200218, end: 20200220
  7. LEVETIRACETAM. [Suspect]
     Active Substance: LEVETIRACETAM
     Indication: EPILEPSY
     Dosage: 1000 MILLIGRAM, ONCE A DAY
     Route: 048
     Dates: start: 20200218, end: 20200222
  8. NEBIVOLOL. [Suspect]
     Active Substance: NEBIVOLOL
     Indication: HYPERTENSION
     Dosage: 2.5 MILLIGRAM, ONCE A DAY
     Route: 048
     Dates: end: 20200218
  9. VALPROIC ACID. [Suspect]
     Active Substance: VALPROIC ACID
     Indication: EPILEPSY
     Dosage: 750 MILLIGRAM, ONCE A DAY
     Route: 048

REACTIONS (1)
  - Agranulocytosis [Recovered/Resolved]

NARRATIVE: CASE EVENT DATE: 20200224
